FAERS Safety Report 16271021 (Version 1)
Quarter: 2019Q2

REPORT INFORMATION
  Report Type: Spontaneous
  Country: PT (occurrence: PT)
  Receive Date: 20190503
  Receipt Date: 20190503
  Transmission Date: 20190711
  Serious: Yes (Other)
  Sender: FDA-Public Use
  Company Number: PT-TEVA-2019-PT-1044417

PATIENT
  Age: 57 Year
  Sex: Female
  Weight: 63 kg

DRUGS (6)
  1. AMLODIPINA RATIOPHARM [Suspect]
     Active Substance: AMLODIPINE BESYLATE
     Indication: HYPERTENSION
     Route: 048
     Dates: start: 201810
  2. CLOXAZOLAM [Concomitant]
     Active Substance: CLOXAZOLAM
     Indication: INSOMNIA
     Route: 048
  3. ROSUVASTATIN. [Concomitant]
     Active Substance: ROSUVASTATIN
     Indication: BLOOD CHOLESTEROL INCREASED
     Route: 048
     Dates: start: 2012
  4. NITROMINT [Concomitant]
     Active Substance: NITROGLYCERIN
     Indication: VASODILATATION
     Route: 048
     Dates: start: 201811
  5. CAPTOPRIL. [Concomitant]
     Active Substance: CAPTOPRIL
     Indication: HYPERTENSION
     Route: 048
     Dates: start: 201811
  6. CARVEDILOL. [Concomitant]
     Active Substance: CARVEDILOL
     Indication: HYPERTENSION
     Route: 048
     Dates: start: 2013

REACTIONS (6)
  - Depression [Not Recovered/Not Resolved]
  - Night sweats [Not Recovered/Not Resolved]
  - Thinking abnormal [Not Recovered/Not Resolved]
  - Negative thoughts [Not Recovered/Not Resolved]
  - Arthralgia [Not Recovered/Not Resolved]
  - Erythema [Not Recovered/Not Resolved]

NARRATIVE: CASE EVENT DATE: 201810
